FAERS Safety Report 7667092-8 (Version None)
Quarter: 2011Q3

REPORT INFORMATION
  Report Type: 
  Country: None (occurrence: None)
  Receive Date: 20110806
  Receipt Date: 20110610
  Transmission Date: 20111222
  Serious: No
  Sender: FDA-Public Use
  Company Number: US-ABBOTT-11P-163-0730948-00

PATIENT
  Sex: Female
  Weight: 88.53 kg

DRUGS (7)
  1. SINGULAIR [Concomitant]
     Indication: PRODUCT USED FOR UNKNOWN INDICATION
  2. ZANTAC [Concomitant]
     Indication: PRODUCT USED FOR UNKNOWN INDICATION
     Dosage: AT HOUR OF SLEEP
  3. DIOVAN HCT [Concomitant]
     Indication: PRODUCT USED FOR UNKNOWN INDICATION
  4. EPINEPHRINE [Concomitant]
     Dosage: PEN  PRN
  5. NIASPAN [Suspect]
     Indication: BLOOD CHOLESTEROL
     Dates: start: 20110607, end: 20110607
  6. UNKNOWN BETA BLOCKER [Concomitant]
     Indication: PRODUCT USED FOR UNKNOWN INDICATION
  7. ZYRTEC [Concomitant]
     Indication: PRODUCT USED FOR UNKNOWN INDICATION

REACTIONS (8)
  - FLUSHING [None]
  - PHARYNGEAL OEDEMA [None]
  - HEADACHE [None]
  - PRURITUS GENERALISED [None]
  - HEART RATE IRREGULAR [None]
  - HYPERHIDROSIS [None]
  - BURNING SENSATION [None]
  - PALPITATIONS [None]
